FAERS Safety Report 9237131 (Version 2)
Quarter: 2013Q2

REPORT INFORMATION
  Report Type: Report from Study
  Country: RS (occurrence: RS)
  Receive Date: 20130417
  Receipt Date: 20130430
  Transmission Date: 20140414
  Serious: Yes (Life-Threatening, Hospitalization)
  Sender: FDA-Public Use
  Company Number: RS-CELGENEUS-308-C5013-13034692

PATIENT
  Age: 78 Year
  Sex: Female
  Weight: 72 kg

DRUGS (6)
  1. CC-5013 [Suspect]
     Indication: CHRONIC LYMPHOCYTIC LEUKAEMIA
     Dosage: 5 MILLIGRAM
     Route: 048
     Dates: start: 20120315
  2. CC-5013 [Suspect]
     Route: 048
     Dates: start: 20130313, end: 20130412
  3. CC-5013 [Suspect]
     Route: 048
     Dates: start: 20130410, end: 20130410
  4. CC-5013 [Suspect]
     Route: 048
     Dates: start: 20130418
  5. ALLOPURINOL [Concomitant]
     Indication: PRODUCT USED FOR UNKNOWN INDICATION
     Route: 065
     Dates: start: 20120315
  6. ASPIRIN PROTECT [Concomitant]
     Indication: PRODUCT USED FOR UNKNOWN INDICATION
     Route: 065
     Dates: start: 20120315

REACTIONS (2)
  - Vascular pseudoaneurysm [Not Recovered/Not Resolved]
  - Pyrexia [Recovered/Resolved]
